FAERS Safety Report 5655289-8 (Version None)
Quarter: 2008Q1

REPORT INFORMATION
  Report Type: 
  Country: None (occurrence: None)
  Receive Date: 20080307
  Receipt Date: 20080229
  Transmission Date: 20080703
  Serious: Yes (Hospitalization)
  Sender: FDA-Public Use
  Company Number: B0511250A

PATIENT
  Age: 58 Year
  Sex: Male

DRUGS (6)
  1. NARAMIG [Suspect]
     Indication: MIGRAINE
     Dosage: 2.5MG SINGLE DOSE
     Route: 048
     Dates: start: 20071207
  2. DEROXAT [Concomitant]
     Indication: DEPRESSION
     Dosage: 20MG PER DAY
     Route: 048
  3. PROPRANOLOL [Concomitant]
     Dosage: 160MG PER DAY
     Route: 048
  4. TAHOR [Concomitant]
     Dosage: 40MG PER DAY
     Route: 048
  5. HYTACAND [Concomitant]
     Route: 048
  6. DEBRIDAT [Concomitant]
     Indication: DRUG USE FOR UNKNOWN INDICATION
     Route: 048

REACTIONS (3)
  - APHASIA [None]
  - HEMIPLEGIA [None]
  - ISCHAEMIC STROKE [None]
